FAERS Safety Report 4994201-1 (Version None)
Quarter: 2006Q2

REPORT INFORMATION
  Report Type: 
  Country: None (occurrence: None)
  Receive Date: 20060503
  Receipt Date: 20060427
  Transmission Date: 20061013
  Serious: No
  Sender: FDA-Public Use
  Company Number: TCI2006A01568

PATIENT
  Age: 75 Year
  Sex: Female

DRUGS (1)
  1. TAKEPRON OD TABLETS 15 (LANSOPRAZOLE) [Suspect]
     Indication: REFLUX OESOPHAGITIS
     Dosage: 15 MG (15 MG, 1 IN 1 D)
     Route: 048
     Dates: start: 20060303, end: 20060327

REACTIONS (1)
  - OCULOMUCOCUTANEOUS SYNDROME [None]
